FAERS Safety Report 4602829-3 (Version None)
Quarter: 2005Q1

REPORT INFORMATION
  Report Type: 
  Country: None (occurrence: None)
  Receive Date: 20050307
  Receipt Date: 20050301
  Transmission Date: 20050727
  Serious: No
  Sender: FDA-Public Use
  Company Number: 2005-125695-NL

PATIENT
  Age: 37 Year
  Sex: Female

DRUGS (8)
  1. MIRTAZAPINE [Suspect]
     Indication: DEPRESSION
     Dosage: 45 F, ORAL
     Route: 048
     Dates: start: 20050101
  2. VENLAFAXINE [Suspect]
     Indication: DEPRESSION
     Dosage: 225 DF ORAL
     Route: 048
     Dates: start: 20050101
  3. QUETIAPINE [Suspect]
     Indication: PSYCHOTIC DISORDER
     Dosage: 250 DF, ORAL
     Route: 048
     Dates: start: 20050214
  4. CODEINE [Concomitant]
  5. PARACETAMOL [Concomitant]
  6. DICLOFENAC [Concomitant]
  7. BISACODYL [Concomitant]
  8. DIAZEPAM [Concomitant]

REACTIONS (1)
  - MYDRIASIS [None]
